FAERS Safety Report 6997167-8 (Version None)
Quarter: 2010Q3

REPORT INFORMATION
  Report Type: 
  Country: None (occurrence: None)
  Receive Date: 20100918
  Receipt Date: 20090916
  Transmission Date: 20110219
  Serious: No
  Sender: FDA-Public Use
  Company Number: US-WYE-H11048509

PATIENT
  Sex: Male
  Weight: 68.1 kg

DRUGS (3)
  1. EFFEXOR XR [Suspect]
     Indication: DEPRESSION
     Dosage: UNSPECIFIED
     Route: 048
     Dates: start: 20090601
  2. CAMPRAL [Concomitant]
  3. ZOLOFT [Concomitant]

REACTIONS (1)
  - DRUG SCREEN POSITIVE [None]
